FAERS Safety Report 16081254 (Version 1)
Quarter: 2019Q1

REPORT INFORMATION
  Report Type: Spontaneous
  Country: NL (occurrence: NL)
  Receive Date: 20190316
  Receipt Date: 20190316
  Transmission Date: 20190418
  Serious: Yes (Other)
  Sender: FDA-Public Use
  Company Number: NL-ACCORD-112739

PATIENT
  Age: 11 Year
  Sex: Male
  Weight: 30 kg

DRUGS (3)
  1. EVEROLIMUS. [Interacting]
     Active Substance: EVEROLIMUS
     Indication: PROPHYLAXIS AGAINST TRANSPLANT REJECTION
     Dosage: 2 DD 1.75 MG (TARGET 4-6 UG / L)
     Dates: start: 20180712
  2. PHLOXAPEN [Interacting]
     Active Substance: FLUCLOXACILLIN
     Indication: URINARY TRACT INFECTION
     Dosage: DR WHEN USED BEFORE EVEROLIMUS SPIGOTS DECREASED FROM 8.4 MG/L TO 5 MG/L
     Dates: start: 20180914, end: 20180924
  3. TACROLIMUS. [Suspect]
     Active Substance: TACROLIMUS
     Indication: PROPHYLAXIS AGAINST TRANSPLANT REJECTION
     Dosage: 2 DD 1.5 MG (TARGET 3-5 MG / L)
     Dates: start: 20180712

REACTIONS (3)
  - Immunosuppressant drug level decreased [Recovered/Resolved]
  - Drug interaction [Unknown]
  - Off label use [Unknown]

NARRATIVE: CASE EVENT DATE: 20180917
